FAERS Safety Report 26214433 (Version 1)
Quarter: 2025Q4

REPORT INFORMATION
  Report Type: Report from Study
  Country: US (occurrence: None)
  Receive Date: 20251230
  Receipt Date: 20251230
  Transmission Date: 20260118
  Serious: Yes (Hospitalization, Other)
  Sender: UCB
  Company Number: US-UCBSA-2025082259

PATIENT
  Age: 77 Year

DRUGS (1)
  1. BRIVARACETAM [Suspect]
     Active Substance: BRIVARACETAM
     Indication: Seizure
     Dosage: 100MG 1 TABLET IN THE MORNING AND 1  TABLET IN THE EVENING
     Route: 061

REACTIONS (3)
  - Seizure [Unknown]
  - COVID-19 [Unknown]
  - Pyrexia [Unknown]
